FAERS Safety Report 19739369 (Version 7)
Quarter: 2022Q2

REPORT INFORMATION
  Report Type: Spontaneous
  Country: CA (occurrence: CA)
  Receive Date: 20210823
  Receipt Date: 20220629
  Transmission Date: 20220721
  Serious: Yes (Other)
  Sender: FDA-Public Use
  Company Number: CA-CELLTRION INC.-2021CA008856

PATIENT

DRUGS (12)
  1. INFLECTRA [Suspect]
     Active Substance: INFLIXIMAB-DYYB
     Indication: Crohn^s disease
     Dosage: 5 MG/ KG, 400 MG, AT 0,2,6 WEEKS AND MAINTENANCE EVERY 8 WEEKS
     Route: 042
     Dates: start: 20200527
  2. INFLECTRA [Suspect]
     Active Substance: INFLIXIMAB-DYYB
     Dosage: 5 MG/ KG, 400 MG, AT 0,2,6 WEEKS AND MAINTENANCE EVERY 8 WEEKS
     Route: 042
  3. INFLECTRA [Suspect]
     Active Substance: INFLIXIMAB-DYYB
     Dosage: 5 MG/ KG, 400 MG, AT 0,2,6 WEEKS AND MAINTENANCE EVERY 8 WEEKS
     Route: 042
     Dates: start: 20210708
  4. INFLECTRA [Suspect]
     Active Substance: INFLIXIMAB-DYYB
     Dosage: 5 MG/ KG, 400 MG, AT 0,2,6 WEEKS AND MAINTENANCE EVERY 8 WEEKS
     Route: 042
     Dates: start: 20210902
  5. INFLECTRA [Suspect]
     Active Substance: INFLIXIMAB-DYYB
     Dosage: 5 MG/ KG, 400 MG, AT 0,2,6 WEEKS AND MAINTENANCE EVERY 8 WEEKS
     Route: 042
     Dates: start: 20211028
  6. INFLECTRA [Suspect]
     Active Substance: INFLIXIMAB-DYYB
     Dosage: 5 MG/ KG, 400 MG, AT 0,2,6 WEEKS AND MAINTENANCE EVERY 8 WEEKS
     Route: 042
     Dates: start: 20211217
  7. INFLECTRA [Suspect]
     Active Substance: INFLIXIMAB-DYYB
     Dosage: 5 MG/ KG, 400 MG, AT 0,2,6 WEEKS AND MAINTENANCE EVERY 8 WEEKS
     Route: 042
     Dates: start: 20220209
  8. INFLECTRA [Suspect]
     Active Substance: INFLIXIMAB-DYYB
     Dosage: 5 MG/ KG, 400 MG, AT 0,2,6 WEEKS AND MAINTENANCE EVERY 8 WEEKS
     Route: 042
     Dates: start: 20220423
  9. INFLECTRA [Suspect]
     Active Substance: INFLIXIMAB-DYYB
     Dosage: 5 MG/ KG, 400 MG, AT 0,2,6 WEEKS AND MAINTENANCE EVERY 8 WEEKS
     Route: 042
     Dates: start: 20220618
  10. CIPROFLOXACIN [Concomitant]
     Active Substance: CIPROFLOXACIN
     Dosage: 1 DF
  11. METRONIDAZOLE [Concomitant]
     Active Substance: METRONIDAZOLE
     Dosage: 1 DF
  12. RIFAMPIN [Concomitant]
     Active Substance: RIFAMPIN
     Dosage: 1 DF NO DOSAGE INFORMATION AVAILABLE.
     Dates: start: 20210427

REACTIONS (6)
  - Haemorrhage [Unknown]
  - Drug ineffective [Unknown]
  - Inappropriate schedule of product administration [Unknown]
  - Fistula [Unknown]
  - Pain [Unknown]
  - Fistula discharge [Unknown]

NARRATIVE: CASE EVENT DATE: 20220423
